FAERS Safety Report 5709610-2 (Version None)
Quarter: 2008Q2

REPORT INFORMATION
  Report Type: 
  Country: None (occurrence: None)
  Receive Date: 20080418
  Receipt Date: 20080414
  Transmission Date: 20081010
  Serious: Yes (Other)
  Sender: FDA-Public Use
  Company Number: A0723674A

PATIENT
  Age: 2 Year
  Sex: Male
  Weight: 11 kg

DRUGS (1)
  1. AMOXICILLIN + CLAVULANATE POTASSIUM [Suspect]
     Indication: SINUSITIS
     Route: 048
     Dates: start: 20080331, end: 20080403

REACTIONS (3)
  - MEDICATION ERROR [None]
  - SYNCOPE [None]
  - VOMITING [None]
